FAERS Safety Report 4831843-8 (Version None)
Quarter: 2005Q4

REPORT INFORMATION
  Report Type: 
  Country: None (occurrence: None)
  Receive Date: 20051118
  Receipt Date: 20051108
  Transmission Date: 20060501
  Serious: Yes (Death)
  Sender: FDA-Public Use
  Company Number: FR-SANOFI-SYNTHELABO-A01200507673

PATIENT
  Age: 63 Year
  Sex: Female

DRUGS (2)
  1. PLAVIX [Suspect]
     Indication: RENAL ARTERY STENT PLACEMENT
     Route: 048
  2. KARDEGIC [Suspect]
     Indication: RENAL ARTERY STENT PLACEMENT

REACTIONS (2)
  - DEATH [None]
  - TOOTH EXTRACTION [None]
